FAERS Safety Report 20195050 (Version 1)
Quarter: 2021Q4

REPORT INFORMATION
  Report Type: Spontaneous
  Country: US (occurrence: None)
  Receive Date: 20211216
  Receipt Date: 20211216
  Transmission Date: 20220303
  Serious: No
  Sender: FDA-Public Use
  Company Number: None

PATIENT
  Sex: Female

DRUGS (1)
  1. COLISTIMETHATE SODIUM [Suspect]
     Active Substance: COLISTIMETHATE SODIUM
     Indication: Lung transplant
     Dosage: FREQUENCY : TWICE A DAY;?OTHER ROUTE : NEBULIZED;?
     Dates: start: 20211015

REACTIONS (1)
  - Wheezing [None]
